FAERS Safety Report 4859922-X (Version None)
Quarter: 2005Q4

REPORT INFORMATION
  Report Type: 
  Country: None (occurrence: None)
  Receive Date: 20051219
  Receipt Date: 20050719
  Transmission Date: 20060501
  Serious: No
  Sender: FDA-Public Use
  Company Number: US-BRISTOL-MYERS SQUIBB COMPANY-13042890

PATIENT
  Age: 45 Year
  Sex: Male
  Weight: 91 kg

DRUGS (10)
  1. DOVONEX SCALP SOLN 0.005% [Suspect]
     Indication: PSORIASIS
  2. DOVONEX [Suspect]
     Indication: PSORIASIS
  3. PERCOCET [Concomitant]
  4. NORCO [Concomitant]
  5. TRICOR [Concomitant]
  6. ZETIA [Concomitant]
  7. MULTI-VITAMIN [Concomitant]
  8. VITAMIN B COMPLEX CAP [Concomitant]
  9. FISH OIL [Concomitant]
  10. FLAXSEED [Concomitant]

REACTIONS (1)
  - MUSCLE SPASMS [None]
